FAERS Safety Report 8289203-6 (Version None)
Quarter: 2012Q2

REPORT INFORMATION
  Report Type: 
  Country: None (occurrence: None)
  Receive Date: 20120417
  Receipt Date: 20120411
  Transmission Date: 20120825
  Serious: Yes (Disabling, Other)
  Sender: FDA-Public Use
  Company Number: PHHY2012CH031256

PATIENT
  Age: 60 Year
  Sex: Male

DRUGS (9)
  1. ZOMETA [Suspect]
     Dosage: 4 MG, ONE PER MONTH
     Route: 041
     Dates: start: 20120209
  2. CARBOPLATIN [Concomitant]
     Indication: BREAST CANCER MALE
     Dosage: 650 MG, ONE PER 3 WEEKS
     Route: 041
     Dates: start: 20111101
  3. ZOMETA [Suspect]
     Indication: METASTASES TO BONE
     Dosage: 4 MG, ONE PER MONTH
     Route: 041
     Dates: start: 20090616
  4. ZOMETA [Suspect]
     Dosage: 4 MG, ONE PER MONTH
     Route: 041
     Dates: start: 20111024
  5. HERCEPTIN [Concomitant]
     Indication: BREAST CANCER MALE
     Dosage: 150 MG, ONE PER WEEK
     Route: 041
     Dates: start: 20111101
  6. AVASTIN [Concomitant]
     Indication: BREAST CANCER MALE
     Dosage: 700 MG, ONE PER 2 WEEKS
     Route: 041
     Dates: start: 20100309, end: 20110214
  7. TAXOL [Concomitant]
     Indication: BREAST CANCER MALE
     Route: 041
     Dates: start: 20100309, end: 20110214
  8. NEULASTA [Concomitant]
     Dates: start: 20120101
  9. TAXOTERE [Concomitant]
     Indication: BREAST CANCER MALE
     Dosage: 140 MG, ONE PER 3 WEEKS
     Route: 041
     Dates: start: 20111101

REACTIONS (4)
  - OSTEONECROSIS [None]
  - TOOTHACHE [None]
  - ANEURYSM [None]
  - ACTINOMYCES TEST POSITIVE [None]
